FAERS Safety Report 10565021 (Version 1)
Quarter: 2014Q4

REPORT INFORMATION
  Report Type: Spontaneous
  Country: BR (occurrence: BR)
  Receive Date: 20141105
  Receipt Date: 20141105
  Transmission Date: 20150529
  Serious: Yes (Other)
  Sender: FDA-Public Use
  Company Number: BR-009507513-1411BRA000608

PATIENT
  Sex: Female
  Weight: 66 kg

DRUGS (2)
  1. APRAZ [Concomitant]
     Dosage: UNK
  2. LOSARTAN POTASSIUM. [Suspect]
     Active Substance: LOSARTAN POTASSIUM
     Indication: HYPERTENSION
     Dosage: UNK
     Route: 048

REACTIONS (1)
  - Breast cancer [Not Recovered/Not Resolved]
